FAERS Safety Report 6239620-0 (Version None)
Quarter: 2009Q2

REPORT INFORMATION
  Report Type: 
  Country: None (occurrence: None)
  Receive Date: 20090619
  Receipt Date: 20090528
  Transmission Date: 20091009
  Serious: Yes (Hospitalization)
  Sender: FDA-Public Use
  Company Number: 2009-0755

PATIENT
  Age: 70 Year
  Sex: Male

DRUGS (2)
  1. SOMATULINA AUTOGEL 120MG (LANREOTIDE) (LANREOTIDE ACETATE) [Suspect]
     Indication: ACROMEGALY
     Dosage: 120 MG, NOT REPORTED
  2. SOMATULINA AUTOGEL 120MG (LANREOTIDE) (LANREOTIDE ACETATE) [Suspect]
     Indication: PREOPERATIVE CARE
     Dosage: 120 MG, NOT REPORTED

REACTIONS (1)
  - PITUITARY HAEMORRHAGE [None]
